FAERS Safety Report 13156396 (Version 1)
Quarter: 2017Q1

REPORT INFORMATION
  Report Type: Report from Study
  Country: US (occurrence: US)
  Receive Date: 20170126
  Receipt Date: 20170126
  Transmission Date: 20170428
  Serious: No
  Sender: FDA-Public Use
  Company Number: US-AMGEN-USASL2017011177

PATIENT
  Sex: Female

DRUGS (3)
  1. LASIX [Concomitant]
     Active Substance: FUROSEMIDE
     Dosage: UNK
  2. ENBREL [Suspect]
     Active Substance: ETANERCEPT
     Indication: PRODUCT USED FOR UNKNOWN INDICATION
     Dosage: UNK UNK, UNK
     Route: 065
     Dates: end: 201605
  3. LASIX [Concomitant]
     Active Substance: FUROSEMIDE
     Dosage: UNK,  DOUBLED
     Dates: start: 20170119

REACTIONS (2)
  - Peripheral swelling [Not Recovered/Not Resolved]
  - Cardiac disorder [Unknown]
